FAERS Safety Report 25800748 (Version 1)
Quarter: 2025Q3

REPORT INFORMATION
  Report Type: Spontaneous
  Country: CN (occurrence: CN)
  Receive Date: 20250915
  Receipt Date: 20250915
  Transmission Date: 20251021
  Serious: Yes (Hospitalization)
  Sender: JIANGSU HENGRUI
  Company Number: CN-SUZHOU SHENGDIA BIOMEDICAL CO., LTD.-H2025231951

PATIENT
  Age: 58 Year
  Weight: 70 kg

DRUGS (2)
  1. PACLITAXEL [Suspect]
     Active Substance: PACLITAXEL
     Indication: Oesophageal squamous cell carcinoma
     Dosage: 0.3 G, Q3W
  2. CAMRELIZUMAB [Suspect]
     Active Substance: CAMRELIZUMAB
     Indication: Oesophageal squamous cell carcinoma
     Dosage: 200 MG, Q3W

REACTIONS (1)
  - Hypothyroidism [Unknown]
